FAERS Safety Report 4783133-X (Version None)
Quarter: 2005Q3

REPORT INFORMATION
  Report Type: 
  Country: None (occurrence: None)
  Receive Date: 20050928
  Receipt Date: 20050928
  Transmission Date: 20060218
  Serious: Yes (Other)
  Sender: FDA-Public Use
  Company Number: None

PATIENT
  Sex: Female

DRUGS (2)
  1. FENTANYL [Suspect]
     Indication: BACK PAIN
     Dosage: ONE Q 72 H (100 MCG)
  2. FENTANYL [Suspect]
     Indication: FIBROMYALGIA
     Dosage: ONE Q 72 H (100 MCG)

REACTIONS (3)
  - APPLICATION SITE REACTION [None]
  - APPLICATION SITE VESICLES [None]
  - SKIN EXFOLIATION [None]
